FAERS Safety Report 8770890 (Version 4)
Quarter: 2013Q2

REPORT INFORMATION
  Report Type: Report from Study
  Country: JP (occurrence: JP)
  Receive Date: 20120906
  Receipt Date: 20130620
  Transmission Date: 20140414
  Serious: Yes (Other)
  Sender: FDA-Public Use
  Company Number: JP-VERTEX PHARMACEUTICAL INC.-2012-020670

PATIENT
  Age: 45 Year
  Sex: Male

DRUGS (22)
  1. VX-950 (TELAPREVIR) [Suspect]
     Indication: CHRONIC HEPATITIS C
     Dosage: 2250 MG, QD
     Route: 048
     Dates: start: 20120302, end: 20120517
  2. VX-950 (TELAPREVIR) [Suspect]
     Dosage: 1500 MG, QD
     Route: 048
     Dates: start: 20120518, end: 20120525
  3. REBETOL [Suspect]
     Indication: CHRONIC HEPATITIS C
     Dosage: 800 MG, QD
     Route: 048
     Dates: start: 20120302, end: 20120405
  4. REBETOL [Suspect]
     Dosage: 600 MG, QD
     Route: 048
     Dates: start: 20120406, end: 20120802
  5. REBETOL [Suspect]
     Dosage: 400 MG, QD
     Route: 048
     Dates: start: 20120803, end: 20120816
  6. PEGINTRON [Suspect]
     Indication: CHRONIC HEPATITIS C
     Dosage: 1.5 ?G/KG, QW
     Route: 058
     Dates: start: 20120302, end: 20120316
  7. PEGINTRON [Suspect]
     Dosage: 0.8 ?G/KG, QW
     Route: 058
     Dates: start: 20120323, end: 20120406
  8. PEGINTRON [Suspect]
     Dosage: 1 ?G/KG, QW
     Route: 058
     Dates: start: 20120413, end: 20120413
  9. PEGINTRON [Suspect]
     Dosage: 0.8 ?G/KG, QW
     Route: 058
     Dates: start: 20120420, end: 20120427
  10. PEGINTRON [Suspect]
     Dosage: 0.9 ?G/KG, QW
     Route: 058
     Dates: start: 20120502, end: 20120518
  11. PEGINTRON [Suspect]
     Dosage: 1 ?G/KG, QW
     Route: 058
     Dates: start: 20120525, end: 20120601
  12. PEGINTRON [Suspect]
     Dosage: 1.3 ?G/KG, QW
     Route: 058
     Dates: start: 20120606, end: 20120810
  13. LOXONIN [Concomitant]
     Dosage: 60 MG, QD
     Route: 048
     Dates: start: 20120302, end: 20120302
  14. ADALAT CR [Concomitant]
     Dosage: 40 MG, QD
     Route: 048
     Dates: end: 20120615
  15. ADALAT CR [Concomitant]
     Dosage: 20 MG, QD
     Route: 048
     Dates: start: 20120616
  16. ARTIST [Concomitant]
     Dosage: 10 MG, QD
     Route: 048
  17. RENIVACE [Concomitant]
     Dosage: 10 MG, QD
     Route: 048
  18. GLIMICRON [Concomitant]
     Dosage: 40 MG, QD
     Route: 048
  19. JANUVIA [Concomitant]
     Dosage: 50 MG, QD
     Route: 048
  20. ZANTAC [Concomitant]
     Dosage: 300 MG, QD
     Route: 048
  21. URSO [Concomitant]
     Dosage: 600 MG, QD
     Route: 048
  22. LOXONIN [Concomitant]
     Dosage: UNK, QD/PRN
     Route: 061

REACTIONS (2)
  - Renal impairment [Recovered/Resolved]
  - Retinal haemorrhage [Recovered/Resolved]
